FAERS Safety Report 5397745-6 (Version None)
Quarter: 2007Q3

REPORT INFORMATION
  Report Type: 
  Country: None (occurrence: None)
  Receive Date: 20070726
  Receipt Date: 20070723
  Transmission Date: 20080115
  Serious: Yes (Hospitalization)
  Sender: FDA-Public Use
  Company Number: A0658933A

PATIENT
  Age: 69 Year
  Sex: Male

DRUGS (11)
  1. ADVAIR DISKUS 100/50 [Suspect]
     Indication: CHRONIC OBSTRUCTIVE PULMONARY DISEASE
     Dosage: 500MCG TWICE PER DAY
     Route: 055
  2. PREDNISONE [Concomitant]
  3. LORAZEPAM [Concomitant]
  4. GABAPENTIN [Concomitant]
  5. PAROXETINE [Concomitant]
  6. QUININE SULFATE [Concomitant]
  7. UNKNOWN MEDICATION [Concomitant]
  8. ITRACONAZOLE [Concomitant]
  9. OXYCODONE HCL [Concomitant]
  10. NEXIUM [Concomitant]
  11. MUCINEX [Concomitant]

REACTIONS (8)
  - ASTHENIA [None]
  - COUGH [None]
  - EMPHYSEMA [None]
  - FOREIGN BODY TRAUMA [None]
  - HAEMOPTYSIS [None]
  - PANIC ATTACK [None]
  - PHARMACEUTICAL PRODUCT COMPLAINT [None]
  - PRODUCTIVE COUGH [None]
